FAERS Safety Report 8539290-2 (Version None)
Quarter: 2012Q3

REPORT INFORMATION
  Report Type: 
  Country: None (occurrence: None)
  Receive Date: 20120726
  Receipt Date: 20110727
  Transmission Date: 20120928
  Serious: No
  Sender: FDA-Public Use
  Company Number: US-ASTRAZENECA-2011SE45072

PATIENT
  Age: 31 Year
  Sex: Female
  Weight: 56.2 kg

DRUGS (3)
  1. CLOZAPAM [Concomitant]
     Indication: ANXIETY
  2. LITHIUM CARBONATE [Concomitant]
     Indication: MANIA
  3. SEROQUEL [Suspect]
     Indication: BIPOLAR I DISORDER
     Route: 048
     Dates: start: 20110401, end: 20110724

REACTIONS (4)
  - NAUSEA [None]
  - INSOMNIA [None]
  - DRUG DOSE OMISSION [None]
  - DECREASED APPETITE [None]
